FAERS Safety Report 18443232 (Version 2)
Quarter: 2021Q1

REPORT INFORMATION
  Report Type: Report from Study
  Country: US (occurrence: US)
  Receive Date: 20201029
  Receipt Date: 20210310
  Transmission Date: 20210419
  Serious: No
  Sender: FDA-Public Use
  Company Number: NVSC2020US284959

PATIENT
  Sex: Female

DRUGS (1)
  1. ENTRESTO [Suspect]
     Active Substance: SACUBITRIL\VALSARTAN
     Indication: CARDIAC FAILURE CONGESTIVE
     Dosage: 24 MG, BID
     Route: 048
     Dates: start: 20201001

REACTIONS (3)
  - Asthenia [Recovering/Resolving]
  - Insomnia [Recovering/Resolving]
  - Cough [Not Recovered/Not Resolved]
